FAERS Safety Report 18846097 (Version 1)
Quarter: 2021Q1

REPORT INFORMATION
  Report Type: Report from Study
  Country: US (occurrence: US)
  Receive Date: 20210203
  Receipt Date: 20210203
  Transmission Date: 20210419
  Serious: No
  Sender: FDA-Public Use
  Company Number: US-EXELIXIS-CABO-20029471

PATIENT
  Sex: Female

DRUGS (2)
  1. CABOMETYX [Suspect]
     Active Substance: CABOZANTINIB S-MALATE
     Indication: RENAL CELL CARCINOMA
     Dosage: 60 MG, QD
     Dates: start: 20200409, end: 20200512
  2. CABOMETYX [Suspect]
     Active Substance: CABOZANTINIB S-MALATE
     Dosage: 40 MG, QD(Q AM W/O FOOD)
     Dates: start: 20200529

REACTIONS (8)
  - Blood pressure increased [Recovering/Resolving]
  - White blood cell count decreased [Recovered/Resolved]
  - Glossodynia [Recovering/Resolving]
  - Oral pain [Unknown]
  - Constipation [Recovered/Resolved]
  - Dysphonia [Unknown]
  - Skin ulcer [Recovered/Resolved]
  - Red blood cell count decreased [Recovered/Resolved]
